FAERS Safety Report 16297350 (Version 1)
Quarter: 2019Q2

REPORT INFORMATION
  Report Type: Spontaneous
  Country: US (occurrence: US)
  Receive Date: 20190510
  Receipt Date: 20190510
  Transmission Date: 20190711
  Serious: Yes (Other)
  Sender: FDA-Public Use
  Company Number: US-TEVA-2019-US-1046216

PATIENT
  Sex: Male
  Weight: 122 kg

DRUGS (1)
  1. MODAFINIL. [Suspect]
     Active Substance: MODAFINIL
     Indication: SLEEP APNOEA SYNDROME
     Dosage: 2 DOSAGE FORMS DAILY;

REACTIONS (5)
  - Feeling abnormal [Unknown]
  - Depression [Unknown]
  - Product substitution issue [Unknown]
  - Anxiety [Unknown]
  - Suicidal ideation [Unknown]
